FAERS Safety Report 5050875-0 (Version None)
Quarter: 2006Q2

REPORT INFORMATION
  Report Type: 
  Country: None (occurrence: None)
  Receive Date: 20060614
  Receipt Date: 20060424
  Transmission Date: 20061013
  Serious: Yes (Other)
  Sender: FDA-Public Use
  Company Number: 445776

PATIENT
  Age: 71 Year
  Sex: Female

DRUGS (12)
  1. BONIVA [Suspect]
     Indication: OSTEOPOROSIS
     Dosage: ORAL
     Route: 048
     Dates: start: 20050415, end: 20050415
  2. SYNTHROID [Concomitant]
  3. NEURONTIN [Concomitant]
  4. EVISTA [Concomitant]
  5. ACIPHEX [Concomitant]
  6. CALCIUM (CALCIUM) [Concomitant]
  7. AMBIEN [Concomitant]
  8. BUSPAR [Concomitant]
  9. ULTRACET [Concomitant]
  10. ATACAND [Concomitant]
  11. KEPPRA [Concomitant]
  12. VITAMINE D (VITAMIN D NOS) [Concomitant]

REACTIONS (2)
  - ABDOMINAL DISTENSION [None]
  - FLATULENCE [None]
